FAERS Safety Report 7624689-9 (Version None)
Quarter: 2011Q3

REPORT INFORMATION
  Report Type: 
  Country: None (occurrence: None)
  Receive Date: 20110720
  Receipt Date: 20110713
  Transmission Date: 20111222
  Serious: Yes (Hospitalization, Other)
  Sender: FDA-Public Use
  Company Number: US-BAYER-2011-044663

PATIENT
  Age: 32 Year
  Sex: Female
  Weight: 117.1 kg

DRUGS (4)
  1. AMBIEN [Concomitant]
     Indication: SLEEP DISORDER
     Dosage: 10 MG, UNK
     Route: 048
     Dates: start: 20110225
  2. XANAX [Concomitant]
     Indication: ANXIETY
     Dosage: UNK
     Dates: start: 20110225
  3. ZOLOFT [Concomitant]
     Indication: ANXIETY
     Dosage: 50 MG, QD
     Route: 048
     Dates: start: 20110225
  4. MIRENA [Suspect]
     Indication: CONTRACEPTION
     Dosage: 20 MCG/24HR, CONT
     Route: 015
     Dates: start: 20080409

REACTIONS (3)
  - VAGINAL HAEMORRHAGE [None]
  - ECTOPIC PREGNANCY WITH INTRAUTERINE DEVICE [None]
  - AMENORRHOEA [None]
